FAERS Safety Report 6617860-6 (Version None)
Quarter: 2010Q1

REPORT INFORMATION
  Report Type: 
  Country: None (occurrence: None)
  Receive Date: 20100223
  Receipt Date: 20091026
  Transmission Date: 20100710
  Serious: Yes (Other)
  Sender: FDA-Public Use
  Company Number: 8053750

PATIENT
  Sex: Female
  Weight: 115.9 kg

DRUGS (1)
  1. CERTOLIZUMAB PEGOL (UCB, INC) [Suspect]
     Indication: RHEUMATOID ARTHRITIS
     Dosage: 400 MG, NR OF DOSES :1 SUBCUTANEOUS
     Route: 058
     Dates: start: 20091019, end: 20091019

REACTIONS (2)
  - INJECTION SITE DISCOLOURATION [None]
  - NEUTROPENIA [None]
